FAERS Safety Report 4678152-8 (Version None)
Quarter: 2005Q2

REPORT INFORMATION
  Report Type: 
  Country: None (occurrence: None)
  Receive Date: 20050527
  Receipt Date: 20050519
  Transmission Date: 20051028
  Serious: Yes (Life-Threatening, Hospitalization)
  Sender: FDA-Public Use
  Company Number: 2005077340

PATIENT
  Age: 63 Year
  Sex: Female

DRUGS (4)
  1. LYRICA [Suspect]
     Indication: NEUROPATHIC PAIN
     Dosage: 225 MG (75 MG, 3 IN 1 D), ORAL
     Route: 048
     Dates: start: 20041229, end: 20050404
  2. DICLOFENAC SODIUM [Concomitant]
  3. AMITRIPTYLINE HCL [Concomitant]
  4. ATENOLOL [Concomitant]

REACTIONS (3)
  - C-REACTIVE PROTEIN INCREASED [None]
  - DISORIENTATION [None]
  - RENAL TUBULAR NECROSIS [None]
